FAERS Safety Report 6474231-3 (Version None)
Quarter: 2009Q4

REPORT INFORMATION
  Report Type: 
  Country: None (occurrence: None)
  Receive Date: 20091204
  Receipt Date: 20091124
  Transmission Date: 20100525
  Serious: Yes (Other)
  Sender: FDA-Public Use
  Company Number: PHEH2009US10992

PATIENT
  Sex: Female

DRUGS (1)
  1. RECLAST [Suspect]
     Indication: OSTEOPOROSIS
     Dosage: 5 MG, UNK
     Dates: start: 20090301, end: 20090301

REACTIONS (4)
  - ARTHROPATHY [None]
  - JOINT SWELLING [None]
  - PAIN [None]
  - RHEUMATOID ARTHRITIS [None]
